FAERS Safety Report 6617931-4 (Version None)
Quarter: 2010Q1

REPORT INFORMATION
  Report Type: 
  Country: None (occurrence: None)
  Receive Date: 20100308
  Receipt Date: 20100303
  Transmission Date: 20100710
  Serious: Yes (Life-Threatening)
  Sender: FDA-Public Use
  Company Number: FR-SANOFI-AVENTIS-2010SA011957

PATIENT
  Age: 67 Year
  Sex: Male

DRUGS (9)
  1. PLAVIX [Suspect]
     Indication: CARDIAC DISORDER
     Route: 048
     Dates: start: 20090901
  2. PREVISCAN [Interacting]
     Indication: CARDIAC DISORDER
     Route: 048
     Dates: start: 20091101, end: 20100115
  3. LEVOTHYROX [Concomitant]
     Indication: DRUG USE FOR UNKNOWN INDICATION
  4. CORDARONE [Concomitant]
     Indication: DRUG USE FOR UNKNOWN INDICATION
  5. SIMVASTATIN [Concomitant]
     Indication: DRUG USE FOR UNKNOWN INDICATION
  6. XATRAL [Concomitant]
     Indication: DRUG USE FOR UNKNOWN INDICATION
  7. AMLOR [Concomitant]
     Indication: DRUG USE FOR UNKNOWN INDICATION
  8. FERROUS SULFATE TAB [Concomitant]
     Indication: DRUG USE FOR UNKNOWN INDICATION
  9. LOXEN [Concomitant]
     Indication: DRUG USE FOR UNKNOWN INDICATION

REACTIONS (5)
  - ACTIVATED PARTIAL THROMBOPLASTIN TIME PROLONGED [None]
  - DRUG INTERACTION [None]
  - HAEMOGLOBIN DECREASED [None]
  - HAEMOPTYSIS [None]
  - INTERNATIONAL NORMALISED RATIO INCREASED [None]
